FAERS Safety Report 8127569-8 (Version None)
Quarter: 2012Q1

REPORT INFORMATION
  Report Type: 
  Country: None (occurrence: None)
  Receive Date: 20120210
  Receipt Date: 20120126
  Transmission Date: 20120608
  Serious: Yes (Hospitalization, Disabling)
  Sender: FDA-Public Use
  Company Number: US-ENDO PHARMACEUTICALS INC.-PERC20120016

PATIENT
  Sex: Male

DRUGS (3)
  1. PERCOCET [Suspect]
     Indication: ERECTILE DYSFUNCTION
     Dosage: 4 TABLETS
     Route: 048
     Dates: start: 20120106
  2. VIAGRA [Suspect]
     Indication: ERECTILE DYSFUNCTION
     Dosage: 6 TABLETS
     Route: 048
     Dates: start: 20120106
  3. CIALIS [Suspect]
     Indication: ERECTILE DYSFUNCTION
     Dosage: 20 TABLETS
     Route: 048
     Dates: start: 20120106

REACTIONS (3)
  - INTENTIONAL DRUG MISUSE [None]
  - DRUG INTERACTION [None]
  - AMPUTATION OF PENIS [None]
